FAERS Safety Report 4782443-X (Version None)
Quarter: 2005Q3

REPORT INFORMATION
  Report Type: 
  Country: None (occurrence: None)
  Receive Date: 20050929
  Receipt Date: 20041027
  Transmission Date: 20060218
  Serious: No
  Sender: FDA-Public Use
  Company Number: US-GLAXOSMITHKLINE-A0531753A

PATIENT
  Age: 49 Year
  Sex: Female

DRUGS (8)
  1. COREG [Suspect]
     Dosage: 6.25MG TWICE PER DAY
     Route: 048
     Dates: start: 20040830
  2. CAPTOPRIL [Concomitant]
  3. PROZAC [Concomitant]
  4. AMBIEN [Concomitant]
  5. DIGOXIN [Concomitant]
  6. DEMADEX [Concomitant]
  7. ALDACTONE [Concomitant]
  8. LEVOTHYROXINE SODIUM [Concomitant]

REACTIONS (2)
  - FATIGUE [None]
  - VISION BLURRED [None]
